FAERS Safety Report 6135286-9 (Version None)
Quarter: 2009Q1

REPORT INFORMATION
  Report Type: 
  Country: None (occurrence: None)
  Receive Date: 20090327
  Receipt Date: 20090316
  Transmission Date: 20090719
  Serious: Yes (Other)
  Sender: FDA-Public Use
  Company Number: US-ELI_LILLY_AND_COMPANY-US200803003457

PATIENT
  Sex: Male
  Weight: 113.38 kg

DRUGS (2)
  1. ZYPREXA [Suspect]
     Indication: MENTAL DISORDER
     Dosage: 40 MG, 2/D
     Dates: start: 20010314, end: 20021113
  2. SYMBYAX [Suspect]

REACTIONS (4)
  - DIABETES MELLITUS [None]
  - OVERDOSE [None]
  - RENAL FAILURE [None]
  - WEIGHT INCREASED [None]
